FAERS Safety Report 16845277 (Version 1)
Quarter: 2019Q3

REPORT INFORMATION
  Report Type: Report from Study
  Country: CA (occurrence: CA)
  Receive Date: 20190924
  Receipt Date: 20190924
  Transmission Date: 20191005
  Serious: Yes (Hospitalization)
  Sender: FDA-Public Use
  Company Number: CA-PFIZER INC-2019407595

PATIENT
  Age: 71 Year
  Sex: Female
  Weight: 81 kg

DRUGS (17)
  1. ESBRIET [Interacting]
     Active Substance: PIRFENIDONE
     Dosage: 534 MG, 3X/DAY
     Route: 048
  2. ESBRIET [Interacting]
     Active Substance: PIRFENIDONE
     Dosage: 267 MG, 3X/DAY
     Route: 048
  3. CIPROFLOXACIN. [Suspect]
     Active Substance: CIPROFLOXACIN
     Indication: PNEUMONIA
     Dosage: 500 MG, 2X/DAY
  4. HYCODAN [HOMATROPINE METHYLBROMIDE;HYDROCODONE BITARTRATE] [Concomitant]
     Dosage: UNK
  5. VITAMIN B12 [Concomitant]
     Active Substance: CYANOCOBALAMIN
     Dosage: UNK
  6. METFORMIN [Concomitant]
     Active Substance: METFORMIN HYDROCHLORIDE
     Dosage: UNK
  7. SENOKOT [Concomitant]
     Active Substance: SENNOSIDES
     Dosage: UNK
  8. VESICARE [Concomitant]
     Active Substance: SOLIFENACIN SUCCINATE
     Dosage: UNK
  9. COENZYME Q10 [Concomitant]
     Active Substance: UBIDECARENONE
     Dosage: UNK
  10. TECTA [Concomitant]
     Active Substance: PANTOPRAZOLE MAGNESIUM
     Dosage: UNK
  11. XARELTO [Concomitant]
     Active Substance: RIVAROXABAN
     Dosage: UNK
  12. ZOPICLONE [Concomitant]
     Active Substance: ZOPICLONE
     Dosage: UNK
  13. ESBRIET [Interacting]
     Active Substance: PIRFENIDONE
     Indication: IDIOPATHIC PULMONARY FIBROSIS
     Dosage: 801 MG, 3X/DAY
     Route: 048
  14. PRAMIPEXOLE. [Concomitant]
     Active Substance: PRAMIPEXOLE
     Dosage: UNK
  15. ROSUVASTATIN. [Concomitant]
     Active Substance: ROSUVASTATIN
     Dosage: UNK
  16. RISEDRONATE [Concomitant]
     Active Substance: RISEDRONATE SODIUM
     Dosage: UNK
  17. SOFLAX [DOCUSATE SODIUM] [Concomitant]
     Dosage: UNK

REACTIONS (8)
  - Cough [Recovered/Resolved]
  - Pulmonary function test decreased [Recovered/Resolved]
  - Dizziness [Recovered/Resolved]
  - Drug interaction [Recovered/Resolved]
  - Vomiting [Recovered/Resolved]
  - Asthenia [Recovered/Resolved]
  - Nausea [Recovered/Resolved]
  - Pneumonia [Recovered/Resolved]
